FAERS Safety Report 7158088-3 (Version None)
Quarter: 2010Q4

REPORT INFORMATION
  Report Type: 
  Country: None (occurrence: None)
  Receive Date: 20101214
  Receipt Date: 20100422
  Transmission Date: 20110411
  Serious: No
  Sender: FDA-Public Use
  Company Number: US-ASTRAZENECA-2010SE18010

PATIENT
  Sex: Female

DRUGS (4)
  1. CRESTOR [Suspect]
     Route: 048
  2. CRESTOR [Interacting]
     Route: 048
  3. SANCTURA [Interacting]
     Route: 065
  4. SANCTURA [Interacting]
     Route: 065

REACTIONS (3)
  - CONSTIPATION [None]
  - DRUG INTERACTION [None]
  - DRY MOUTH [None]
